FAERS Safety Report 10638188 (Version 2)
Quarter: 2015Q1

REPORT INFORMATION
  Report Type: Spontaneous
  Country: IT (occurrence: IT)
  Receive Date: 20141208
  Receipt Date: 20150127
  Transmission Date: 20150720
  Serious: Yes (Hospitalization, Other)
  Sender: FDA-Public Use
  Company Number: IT-ELI_LILLY_AND_COMPANY-IT201412000157

PATIENT
  Age: 78 Year
  Sex: Female

DRUGS (11)
  1. LANTUS [Suspect]
     Active Substance: INSULIN GLARGINE
     Dosage: 15 U, QD
     Route: 058
     Dates: start: 20141123, end: 20141123
  2. METFORMIN ACTAVIS [Concomitant]
     Active Substance: METFORMIN HYDROCHLORIDE
     Indication: DIABETES MELLITUS
     Dosage: 1000 MG, UNKNOWN
     Route: 048
  3. CARDURA [Concomitant]
     Active Substance: DOXAZOSIN MESYLATE
     Dosage: UNK
  4. HUMALOG [Suspect]
     Active Substance: INSULIN LISPRO
     Indication: INTENTIONAL SELF-INJURY
     Dosage: UNK
     Route: 058
     Dates: start: 2012
  5. SAMYR                              /00882303/ [Concomitant]
     Dosage: UNK
     Route: 030
  6. LANTUS [Suspect]
     Active Substance: INSULIN GLARGINE
     Indication: INTENTIONAL SELF-INJURY
     Dosage: UNK
     Route: 058
     Dates: start: 2012
  7. APROVEL [Concomitant]
     Active Substance: IRBESARTAN
     Dosage: UNK
     Route: 048
  8. HUMALOG [Suspect]
     Active Substance: INSULIN LISPRO
     Dosage: 12 U, BID
     Route: 058
     Dates: start: 20141123, end: 20141123
  9. SEREUPIN [Concomitant]
     Active Substance: PAROXETINE HYDROCHLORIDE
     Dosage: UNK
     Route: 048
  10. HUMALOG [Suspect]
     Active Substance: INSULIN LISPRO
     Dosage: 11 U, QD
     Route: 058
     Dates: start: 20141123, end: 20141123
  11. CARDIOASPIRIN [Concomitant]
     Active Substance: ASPIRIN
     Dosage: 100 MG, UNKNOWN
     Route: 048

REACTIONS (8)
  - Depression [Unknown]
  - Hypoglycaemia [Recovered/Resolved]
  - Intentional self-injury [Unknown]
  - Tinnitus [Unknown]
  - Intentional self-injury [Recovered/Resolved]
  - Headache [Unknown]
  - Neck pain [Unknown]
  - Paraesthesia [Unknown]

NARRATIVE: CASE EVENT DATE: 20141123
